FAERS Safety Report 12597554 (Version 1)
Quarter: 2016Q3

REPORT INFORMATION
  Report Type: Spontaneous
  Country: US (occurrence: US)
  Receive Date: 20160727
  Receipt Date: 20160727
  Transmission Date: 20161109
  Serious: No
  Sender: FDA-Public Use
  Company Number: US-PFIZER INC-2016324600

PATIENT
  Age: 69 Year

DRUGS (1)
  1. METAXALONE. [Suspect]
     Active Substance: METAXALONE
     Dosage: UNK

REACTIONS (1)
  - Drug hypersensitivity [Unknown]
